FAERS Safety Report 6163664-0 (Version None)
Quarter: 2009Q2

REPORT INFORMATION
  Report Type: 
  Country: None (occurrence: None)
  Receive Date: 20090422
  Receipt Date: 20090415
  Transmission Date: 20091009
  Serious: Yes (Death)
  Sender: FDA-Public Use
  Company Number: TR-ELI_LILLY_AND_COMPANY-TR200904004357

PATIENT
  Age: 55 Year
  Sex: Female

DRUGS (2)
  1. HUMALOG MIX 75/25 [Suspect]
     Indication: DIABETES MELLITUS
     Dosage: 16 IU, EACH MORNING
     Route: 058
     Dates: start: 20070101
  2. HUMALOG MIX 75/25 [Suspect]
     Dosage: 8 IU, EACH EVENING
     Route: 058

REACTIONS (1)
  - LUNG NEOPLASM MALIGNANT [None]
